FAERS Safety Report 23217859 (Version 2)
Quarter: 2023Q4

REPORT INFORMATION
  Report Type: Spontaneous
  Country: NL (occurrence: NL)
  Receive Date: 20231122
  Receipt Date: 20231229
  Transmission Date: 20240110
  Serious: Yes (Death, Hospitalization)
  Sender: FDA-Public Use
  Company Number: NL-ROCHE-3454852

PATIENT
  Age: 67 Year
  Sex: Male

DRUGS (3)
  1. BEVACIZUMAB [Suspect]
     Active Substance: BEVACIZUMAB
     Indication: Neoplasm
     Dosage: DATE OF MOST RECENT DOSE ON 25OCT2023.
     Route: 042
     Dates: start: 20230913
  2. ATEZOLIZUMAB [Suspect]
     Active Substance: ATEZOLIZUMAB
     Indication: Neoplasm
     Dosage: DATE OF MOST RECENT DOSE ON 25OCT2023.
     Route: 042
     Dates: start: 20230913
  3. EDOXABAN [Concomitant]
     Active Substance: EDOXABAN
     Indication: Neoplasm
     Dosage: 60 MG
     Dates: start: 20230824

REACTIONS (2)
  - Confusional state [Not Recovered/Not Resolved]
  - Neoplasm progression [Fatal]

NARRATIVE: CASE EVENT DATE: 20231103
